FAERS Safety Report 10089273 (Version 1)
Quarter: 2014Q2

REPORT INFORMATION
  Report Type: Report from Study
  Country: US (occurrence: US)
  Receive Date: 20140421
  Receipt Date: 20140421
  Transmission Date: 20141212
  Serious: Yes (Other)
  Sender: FDA-Public Use
  Company Number: US-ROCHE-1383782

PATIENT
  Sex: Female
  Weight: 58.11 kg

DRUGS (8)
  1. HERCEPTIN [Suspect]
     Indication: BREAST CANCER
     Dosage: 230 FIRST DOSE 110
     Route: 042
     Dates: start: 20131203
  2. TAXOTERE [Concomitant]
     Indication: BREAST CANCER
     Route: 042
     Dates: start: 20131203, end: 20140324
  3. LEVOTHYROXINE [Concomitant]
     Route: 048
  4. METOPROLOL TARTRATE [Concomitant]
     Indication: BLOOD PRESSURE
     Route: 048
  5. HYDROCHLOROTHIAZIDE [Concomitant]
     Route: 048
  6. NEULASTA [Concomitant]
     Dosage: HAD RECEIVED 6 DOSES OF NEULASTA
     Route: 065
  7. POTASSIUM CHLORIDE [Concomitant]
     Route: 065
  8. CARBOPLATIN [Concomitant]
     Indication: BREAST CANCER
     Route: 042
     Dates: start: 20131203, end: 20140324

REACTIONS (4)
  - Hepatic enzyme increased [Unknown]
  - Nausea [Unknown]
  - Red blood cell count decreased [Unknown]
  - Fatigue [Unknown]
